FAERS Safety Report 7230291-3 (Version None)
Quarter: 2011Q1

REPORT INFORMATION
  Report Type: 
  Country: None (occurrence: None)
  Receive Date: 20110118
  Receipt Date: 20110105
  Transmission Date: 20110831
  Serious: Yes (Other)
  Sender: FDA-Public Use
  Company Number: JP-CELGENEUS-087-21880-10111717

PATIENT
  Sex: Female

DRUGS (16)
  1. HUSTAZOL [Concomitant]
     Route: 048
     Dates: start: 20100714, end: 20101013
  2. LENADEX [Suspect]
     Indication: MULTIPLE MYELOMA
     Route: 048
     Dates: start: 20100902, end: 20100905
  3. LENADEX [Suspect]
     Route: 048
     Dates: start: 20100930, end: 20101003
  4. BIOFERMIN [Concomitant]
     Route: 048
     Dates: start: 20100928, end: 20101013
  5. LENADEX [Suspect]
     Route: 048
     Dates: start: 20100911, end: 20100914
  6. SIGMART [Concomitant]
     Indication: ANGINA PECTORIS
     Route: 048
     Dates: start: 20100602, end: 20101013
  7. ZOMETA [Suspect]
     Route: 041
     Dates: start: 20100929, end: 20100929
  8. DIOVAN [Concomitant]
     Indication: HYPERTENSION
     Route: 048
     Dates: start: 20091028, end: 20101013
  9. MAGMITT [Concomitant]
     Route: 048
     Dates: start: 20090518, end: 20100928
  10. ZOMETA [Suspect]
     Indication: MULTIPLE MYELOMA
     Route: 041
     Dates: start: 20100825, end: 20100825
  11. PARIET [Concomitant]
     Indication: PROPHYLAXIS
     Route: 048
     Dates: start: 20090518, end: 20101013
  12. REVLIMID [Suspect]
     Indication: MULTIPLE MYELOMA
     Route: 048
     Dates: start: 20100901, end: 20100914
  13. REVLIMID [Suspect]
     Route: 048
     Dates: start: 20100930, end: 20101005
  14. CONIEL [Concomitant]
     Indication: HYPERTENSION
     Route: 048
     Dates: start: 20090518, end: 20101013
  15. URSO 250 [Concomitant]
     Route: 048
     Dates: start: 20090518, end: 20101013
  16. PURSENNID [Concomitant]
     Route: 048
     Dates: start: 20090722, end: 20100928

REACTIONS (11)
  - C-REACTIVE PROTEIN INCREASED [None]
  - NEUTROPHIL COUNT DECREASED [None]
  - BLOOD CREATININE INCREASED [None]
  - HAEMOGLOBIN DECREASED [None]
  - HYPOALBUMINAEMIA [None]
  - BLOOD LACTATE DEHYDROGENASE INCREASED [None]
  - INFECTION [None]
  - RENAL IMPAIRMENT [None]
  - PLATELET COUNT DECREASED [None]
  - BLOOD BILIRUBIN INCREASED [None]
  - HYPOCALCAEMIA [None]
